FAERS Safety Report 13468309 (Version 1)
Quarter: 2017Q2

REPORT INFORMATION
  Report Type: Spontaneous
  Country: US (occurrence: US)
  Receive Date: 20170421
  Receipt Date: 20170421
  Transmission Date: 20170830
  Serious: Yes (Hospitalization)
  Sender: FDA-Public Use
  Company Number: US-JUBILANT CADISTA PHARMACEUTICALS-2017JUB00121

PATIENT
  Age: 32 Year
  Sex: Male

DRUGS (1)
  1. BUPROPION. [Suspect]
     Active Substance: BUPROPION
     Dosage: ^BETWEEN 30 AND 90 TABLETS^, ONCE
     Route: 048

REACTIONS (6)
  - Corneal reflex decreased [Recovering/Resolving]
  - Pneumonia aspiration [Unknown]
  - Intentional overdose [Recovered/Resolved]
  - Generalised tonic-clonic seizure [Recovered/Resolved]
  - Areflexia [Recovering/Resolving]
  - Status epilepticus [Recovered/Resolved]
